FAERS Safety Report 20103160 (Version 1)
Quarter: 2021Q4

REPORT INFORMATION
  Report Type: Spontaneous
  Country: US (occurrence: US)
  Receive Date: 20211123
  Receipt Date: 20211123
  Transmission Date: 20220303
  Serious: No
  Sender: FDA-Public Use
  Company Number: US-MYLANLABS-2021M1081584

PATIENT
  Sex: Female

DRUGS (1)
  1. YUPELRI [Suspect]
     Active Substance: REVEFENACIN
     Indication: Emphysema
     Dosage: UNK

REACTIONS (4)
  - Oral discomfort [Unknown]
  - Tongue discomfort [Unknown]
  - Mouth swelling [Unknown]
  - Lip swelling [Unknown]
